FAERS Safety Report 9733375 (Version 3)
Quarter: 2014Q2

REPORT INFORMATION
  Report Type: Spontaneous
  Country: US (occurrence: US)
  Receive Date: 20131204
  Receipt Date: 20140515
  Transmission Date: 20141212
  Serious: Yes (Other)
  Sender: FDA-Public Use
  Company Number: US-JNJFOC-2010011212

PATIENT
  Age: 11 Day
  Sex: Male
  Weight: 6.58 kg

DRUGS (15)
  1. CHILDREN^S ZYRTEC PERFECT MEASURE SUGAR-FREE DYE-FREE ALLERGY SYRUP [Suspect]
     Route: 048
  2. CHILDREN^S ZYRTEC PERFECT MEASURE SUGAR-FREE DYE-FREE ALLERGY SYRUP [Suspect]
     Indication: PRODUCT USED FOR UNKNOWN INDICATION
     Dosage: DAILY DOSE TEXT: UNKNOWN
     Route: 048
  3. CONCENTRATED TYLENOL INFANTS^ CHERRY [Suspect]
     Indication: PYREXIA
     Route: 048
  4. CONCENTRATED TYLENOL INFANTS^ CHERRY [Suspect]
     Indication: PYREXIA
     Route: 048
  5. CONCENTRATED TYLENOL INFANTS^ CHERRY [Suspect]
     Indication: PYREXIA
     Dosage: DAILY DOSE TEXT: 0.4ML NOW 0.8ML EVERY 4-6 HOURS AS NEED
     Route: 048
     Dates: start: 201004
  6. CONCENTRATED TYLENOL INFANTS^ GRAPE [Suspect]
     Route: 048
  7. CONCENTRATED TYLENOL INFANTS^ GRAPE [Suspect]
     Indication: PRODUCT USED FOR UNKNOWN INDICATION
     Dosage: DAILY DOSE TEXT: UNKNOWN
     Route: 048
  8. CHILDREN^S TYLENOL LIQUID VERY BERRY STRAWBERRY [Suspect]
     Route: 048
  9. CHILDREN^S TYLENOL LIQUID VERY BERRY STRAWBERRY [Suspect]
     Indication: PRODUCT USED FOR UNKNOWN INDICATION
     Dosage: DAILY DOSE TEXT: UNKNOWN
     Route: 048
  10. CONCENTRATED TYLENOL INFANTS^ DYE FREE CHERRY [Suspect]
     Route: 048
  11. CONCENTRATED TYLENOL INFANTS^ DYE FREE CHERRY [Suspect]
     Indication: PRODUCT USED FOR UNKNOWN INDICATION
     Route: 048
  12. CHILDREN^S MOTRIN BERRY ORAL [Suspect]
     Route: 048
  13. CHILDREN^S MOTRIN BERRY ORAL [Suspect]
     Indication: PRODUCT USED FOR UNKNOWN INDICATION
     Dosage: DAILY DOSE TEXT: UNKNOWN
     Route: 048
  14. CHILDREN^S MOTRIN GRAPE ORAL [Suspect]
     Route: 048
  15. CHILDREN^S MOTRIN GRAPE ORAL [Suspect]
     Indication: PRODUCT USED FOR UNKNOWN INDICATION
     Route: 048

REACTIONS (6)
  - Bronchiolitis [Recovered/Resolved]
  - Adverse event [Recovered/Resolved]
  - Wheezing [Recovered/Resolved]
  - Wrong patient received medication [Recovered/Resolved]
  - Product quality issue [Unknown]
  - Otitis media [Recovered/Resolved]
